FAERS Safety Report 17011913 (Version 3)
Quarter: 2021Q3

REPORT INFORMATION
  Report Type: Report from Study
  Country: CA (occurrence: CA)
  Receive Date: 20191108
  Receipt Date: 20210806
  Transmission Date: 20211014
  Serious: Yes (Hospitalization)
  Sender: FDA-Public Use
  Company Number: CA-PFIZER INC-2019483838

PATIENT
  Age: 58 Year
  Sex: Male
  Weight: 81 kg

DRUGS (5)
  1. AXITINIB [Suspect]
     Active Substance: AXITINIB
     Indication: GLIOBLASTOMA MULTIFORME
     Dosage: 5 MG, 2X/DAY
     Route: 048
     Dates: start: 20190925
  2. TEMODAL [Suspect]
     Active Substance: TEMOZOLOMIDE
     Indication: GLIOBLASTOMA MULTIFORME
     Dosage: 300 MG, 1X/DAY
     Route: 048
     Dates: start: 20190620, end: 20190723
  3. DECADRON [Suspect]
     Active Substance: DEXAMETHASONE
     Indication: HEMIPARESIS
     Dosage: 7 MG, 1X/DAY
     Route: 048
     Dates: start: 20190911
  4. AVELUMAB [Suspect]
     Active Substance: AVELUMAB
     Dosage: 814 MG, UNK
     Dates: end: 20191022
  5. AVELUMAB [Suspect]
     Active Substance: AVELUMAB
     Indication: GLIOBLASTOMA MULTIFORME
     Dosage: 850 MG, UNK
     Route: 042
     Dates: start: 20190620

REACTIONS (1)
  - Febrile neutropenia [Recovered/Resolved]

NARRATIVE: CASE EVENT DATE: 20191023
